APPROVED DRUG PRODUCT: GABAPENTIN
Active Ingredient: GABAPENTIN
Strength: 100MG
Dosage Form/Route: CAPSULE;ORAL
Application: A208928 | Product #001
Applicant: IPCA LABORATORIES LTD
Approved: Nov 20, 2023 | RLD: No | RS: No | Type: DISCN